FAERS Safety Report 6896919-2 (Version None)
Quarter: 2010Q3

REPORT INFORMATION
  Report Type: 
  Country: None (occurrence: None)
  Receive Date: 20100802
  Receipt Date: 20070213
  Transmission Date: 20110219
  Serious: No
  Sender: FDA-Public Use
  Company Number: US-PFIZER INC-2007012339

PATIENT
  Sex: Female
  Weight: 62.6 kg

DRUGS (4)
  1. LYRICA [Suspect]
     Indication: NERVOUS SYSTEM DISORDER
     Route: 048
  2. FOSAMAX [Concomitant]
  3. ZOCOR [Concomitant]
  4. ZELNORM [Concomitant]

REACTIONS (4)
  - BURNING SENSATION [None]
  - PAIN [None]
  - PRURITUS [None]
  - RASH GENERALISED [None]
